FAERS Safety Report 23929837 (Version 1)
Quarter: 2024Q2

REPORT INFORMATION
  Report Type: Spontaneous
  Country: US (occurrence: US)
  Receive Date: 20240601
  Receipt Date: 20240601
  Transmission Date: 20240715
  Serious: No
  Sender: FDA-Public Use
  Company Number: US-RADIUS HEALTH INC.-2022US004454

PATIENT
  Sex: Female

DRUGS (6)
  1. TYMLOS [Suspect]
     Active Substance: ABALOPARATIDE
     Indication: Senile osteoporosis
     Dosage: 80 MCG, QD
     Route: 058
     Dates: start: 20220419
  2. SENOKOT [Concomitant]
     Active Substance: SENNOSIDES
     Indication: Product used for unknown indication
     Dosage: 8.6 MG, UNK
  3. VITAMIN B COMPLEX [Concomitant]
     Active Substance: CYANOCOBALAMIN\DEXPANTHENOL\NIACINAMIDE\PYRIDOXINE HYDROCHLORIDE\RIBOFLAVIN 5^-PHOSPHATE SODIUM\THIA
     Indication: Product used for unknown indication
     Dosage: 50 MG, UNK
  4. VITAMIN C [Concomitant]
     Active Substance: ASCORBIC ACID
     Indication: Product used for unknown indication
     Dosage: 500 MG, UNK
  5. BUSPIRONE [Concomitant]
     Active Substance: BUSPIRONE HYDROCHLORIDE
     Indication: Product used for unknown indication
     Dosage: UNK
  6. CALCIUM\CHOLECALCIFEROL [Concomitant]
     Active Substance: CALCIUM\CHOLECALCIFEROL
     Indication: Product used for unknown indication

REACTIONS (8)
  - Loss of personal independence in daily activities [Unknown]
  - Headache [Unknown]
  - Nausea [Unknown]
  - Vomiting [Unknown]
  - Injection site pain [Unknown]
  - Injection site bruising [Unknown]
  - Fatigue [Unknown]
  - Arthralgia [Unknown]
